FAERS Safety Report 7649051-4 (Version None)
Quarter: 2011Q3

REPORT INFORMATION
  Report Type: 
  Country: None (occurrence: None)
  Receive Date: 20110802
  Receipt Date: 20110722
  Transmission Date: 20111222
  Serious: Yes (Other)
  Sender: FDA-Public Use
  Company Number: AR-GENZYME-THYM-1002638

PATIENT
  Age: 25 Year
  Sex: Female

DRUGS (3)
  1. HYDROCORTISONE [Concomitant]
     Indication: PREMEDICATION
     Dosage: UNK
  2. THYMOGLOBULIN [Suspect]
     Indication: BONE MARROW FAILURE
     Dosage: 14 ML, Q1HR
     Route: 042
     Dates: start: 20110708
  3. BENADRYL [Concomitant]
     Indication: PREMEDICATION

REACTIONS (3)
  - DRUG HYPERSENSITIVITY [None]
  - HYPERSENSITIVITY [None]
  - LARYNGOSPASM [None]
